FAERS Safety Report 9728352 (Version 1)
Quarter: 2013Q4

REPORT INFORMATION
  Report Type: Spontaneous
  Country: US (occurrence: None)
  Receive Date: 20131203
  Receipt Date: 20131203
  Transmission Date: 20140711
  Serious: Yes (Hospitalization, Other)
  Sender: FDA-Public Use
  Company Number: None

PATIENT
  Age: 70 Year
  Sex: Female
  Weight: 78.93 kg

DRUGS (1)
  1. RANEXA [Suspect]
     Indication: ATRIOVENTRICULAR BLOCK
     Dates: start: 20130815, end: 20131101

REACTIONS (6)
  - Hepatitis [None]
  - Hypoaesthesia [None]
  - Headache [None]
  - Dizziness [None]
  - Dyspnoea [None]
  - Cognitive disorder [None]
